FAERS Safety Report 4332631-1 (Version None)
Quarter: 2004Q1

REPORT INFORMATION
  Report Type: 
  Country: None (occurrence: None)
  Receive Date: 20040330
  Receipt Date: 20040311
  Transmission Date: 20041129
  Serious: Yes (Hospitalization)
  Sender: FDA-Public Use
  Company Number: A02200300213

PATIENT
  Age: 80 Year
  Sex: Female

DRUGS (8)
  1. CORDARONE [Suspect]
     Indication: ARRHYTHMIA
     Dosage: 200 MG 3/WEEK, ORAL
     Route: 048
     Dates: start: 20010101, end: 20030301
  2. STILNOX - (ZOLPIDEM) - TABLET - 10 MG [Suspect]
     Dosage: ORAL
     Route: 048
  3. LEVOTHYROXINE SODIUM [Suspect]
     Dosage: ORAL
     Route: 048
  4. TENORMINE - (ATENOLOL) - TABLET- UNIT DOSE : UNKNOWN [Suspect]
     Dosage: ORAL
     Route: 048
  5. OMEPRAZOLE [Suspect]
     Dosage: ORAL
     Route: 048
  6. TRIATEC - (RAMIPRIL) - CAPSULE - 2.5 MG [Suspect]
     Dosage: ORAL
     Route: 048
  7. ASPIRIN [Concomitant]
  8. VASTAREL (TRIMETAZIDINE HYDROCHLORIDE) [Concomitant]

REACTIONS (2)
  - LUMBAR SPINAL STENOSIS [None]
  - NEUROPATHY PERIPHERAL [None]
